FAERS Safety Report 16219353 (Version 1)
Quarter: 2019Q2

REPORT INFORMATION
  Report Type: Report from Study
  Country: US (occurrence: US)
  Receive Date: 20190419
  Receipt Date: 20190419
  Transmission Date: 20190711
  Serious: Yes (Other)
  Sender: FDA-Public Use
  Company Number: US-MYLANLABS-2019M1033914

PATIENT
  Age: 61 Year
  Sex: Female
  Weight: 53 kg

DRUGS (1)
  1. GLATIRAMER ACETATE INJECTION [Suspect]
     Active Substance: GLATIRAMER ACETATE
     Indication: RELAPSING-REMITTING MULTIPLE SCLEROSIS
     Dosage: 40 MILLIGRAM, 3XW
     Route: 058
     Dates: start: 20190401

REACTIONS (7)
  - Injection site erythema [Unknown]
  - Injection site reaction [Unknown]
  - Injection site hypersensitivity [Unknown]
  - Therapeutic product effect decreased [Unknown]
  - Injection site mass [Unknown]
  - Injection site pain [Unknown]
  - Injection site urticaria [Unknown]

NARRATIVE: CASE EVENT DATE: 201904
